FAERS Safety Report 9429841 (Version 1)
Quarter: 2013Q3

REPORT INFORMATION
  Report Type: Spontaneous
  Country: US (occurrence: US)
  Receive Date: 20130730
  Receipt Date: 20130730
  Transmission Date: 20140515
  Serious: No
  Sender: FDA-Public Use
  Company Number: US-ABBOTT-13P-163-1072171-00

PATIENT
  Age: 47 Year
  Sex: Male
  Weight: 81.72 kg

DRUGS (8)
  1. NIASPAN (COATED) [Suspect]
     Indication: BLOOD CHOLESTEROL INCREASED
     Dates: start: 2011, end: 2011
  2. NIASPAN (COATED) [Suspect]
     Dates: start: 2011, end: 2012
  3. NIASPAN (COATED) [Suspect]
     Dates: start: 2012, end: 201207
  4. NIASPAN (COATED) [Suspect]
     Indication: BLOOD CHOLESTEROL INCREASED
     Dates: start: 201208
  5. LIPITOR [Concomitant]
     Indication: BLOOD CHOLESTEROL INCREASED
  6. ALDACTONE [Concomitant]
     Indication: HYPERTENSION
  7. ALLOPURINOL [Concomitant]
     Indication: GOUT
  8. LOSARTAN [Concomitant]
     Indication: HYPERTENSION

REACTIONS (3)
  - Product lot number issue [Unknown]
  - Rash [Recovered/Resolved]
  - Rash [Recovered/Resolved]
